FAERS Safety Report 12337817 (Version 1)
Quarter: 2016Q2

REPORT INFORMATION
  Report Type: Spontaneous
  Country: US (occurrence: US)
  Receive Date: 20160505
  Receipt Date: 20160505
  Transmission Date: 20160815
  Serious: No
  Sender: FDA-Public Use
  Company Number: US-FRESENIUS KABI-FK201602494

PATIENT
  Sex: Female

DRUGS (1)
  1. PENTAM 300 [Suspect]
     Active Substance: PENTAMIDINE ISETHIONATE
     Indication: ANTIBIOTIC PROPHYLAXIS
     Route: 042
     Dates: start: 20160420

REACTIONS (5)
  - Urticaria [Unknown]
  - Dyspnoea [Unknown]
  - Flushing [Unknown]
  - Paraesthesia [Unknown]
  - Rash [Unknown]
